FAERS Safety Report 9423053 (Version 3)
Quarter: 2014Q1

REPORT INFORMATION
  Report Type: Spontaneous
  Country: US (occurrence: US)
  Receive Date: 20130726
  Receipt Date: 20140219
  Transmission Date: 20141002
  Serious: Yes (Hospitalization)
  Sender: FDA-Public Use
  Company Number: US-GLAXOSMITHKLINE-A1035063A

PATIENT
  Age: 47 Year
  Sex: Male

DRUGS (2)
  1. PROMACTA [Suspect]
     Indication: APLASTIC ANAEMIA
     Route: 048
     Dates: start: 20130613
  2. ANTIBIOTICS [Concomitant]

REACTIONS (11)
  - Platelet transfusion [Unknown]
  - Platelet count decreased [Unknown]
  - Fatigue [Unknown]
  - Drug ineffective [Unknown]
  - Diarrhoea [Unknown]
  - Enuresis [Unknown]
  - Frequent bowel movements [Unknown]
  - Flatulence [Unknown]
  - Blood disorder [Unknown]
  - Platelet disorder [Unknown]
  - Investigation [Unknown]
